FAERS Safety Report 16142565 (Version 4)
Quarter: 2021Q4

REPORT INFORMATION
  Report Type: Spontaneous
  Country: FR (occurrence: FR)
  Receive Date: 20190401
  Receipt Date: 20211005
  Transmission Date: 20220303
  Serious: Yes (Other)
  Sender: FDA-Public Use
  Company Number: None

PATIENT
  Age: 25 Year
  Sex: Male

DRUGS (3)
  1. PIPERACILLIN SODIUM\TAZOBACTAM SODIUM [Suspect]
     Active Substance: PIPERACILLIN SODIUM\TAZOBACTAM SODIUM
     Indication: Pseudomonas infection
     Dosage: 168 G, UNK (EVERY 4 MONTHS)
     Route: 042
     Dates: start: 2000, end: 200801
  2. TOBRAMYCIN [Concomitant]
     Active Substance: TOBRAMYCIN
     Indication: Pseudomonas infection
     Dosage: 6300 MG, UNK (EVERY 4 MONTHS)
     Route: 042
     Dates: start: 2000
  3. TOBRAMYCIN [Concomitant]
     Active Substance: TOBRAMYCIN
     Dosage: UNK

REACTIONS (1)
  - Fixed eruption [Recovered/Resolved]

NARRATIVE: CASE EVENT DATE: 20070101
